FAERS Safety Report 14979509 (Version 1)
Quarter: 2018Q2

REPORT INFORMATION
  Report Type: Spontaneous
  Country: US (occurrence: US)
  Receive Date: 20180516
  Receipt Date: 20180516
  Transmission Date: 20180711
  Serious: Yes (Hospitalization)
  Sender: FDA-Public Use
  Company Number: None

PATIENT
  Age: 57 Year
  Sex: Female
  Weight: 71.55 kg

DRUGS (7)
  1. ZANTAC [Concomitant]
     Active Substance: RANITIDINE HYDROCHLORIDE
  2. VALIUM 5 [Concomitant]
  3. BABY ASPIRIN [Concomitant]
     Active Substance: ASPIRIN
  4. BENTYL [Concomitant]
     Active Substance: DICYCLOMINE HYDROCHLORIDE
  5. NUBAIN [Suspect]
     Active Substance: NALBUPHINE HYDROCHLORIDE
     Indication: HEADACHE
     Dates: start: 20180501, end: 20180501
  6. NARCOTIC PAIN MEDICATION [Concomitant]
     Active Substance: UNSPECIFIED INGREDIENT
  7. ZOPHRAN [Concomitant]

REACTIONS (3)
  - Neurological symptom [None]
  - Cardiac disorder [None]
  - Screaming [None]

NARRATIVE: CASE EVENT DATE: 20180501
